FAERS Safety Report 24194526 (Version 4)
Quarter: 2024Q4

REPORT INFORMATION
  Report Type: Spontaneous
  Country: DE (occurrence: DE)
  Receive Date: 20240809
  Receipt Date: 20241105
  Transmission Date: 20250114
  Serious: Yes (Other)
  Sender: NOVA LABORATORIES LIMITED
  Company Number: DE-Nova Laboratories Limited-2160238

PATIENT
  Age: 73 Year
  Sex: Female

DRUGS (1)
  1. XROMI [Suspect]
     Active Substance: HYDROXYUREA
     Indication: Myeloproliferative neoplasm

REACTIONS (6)
  - Dermatomyositis [Recovered/Resolved]
  - Radiation interaction [Recovered/Resolved]
  - TP53 gene mutation [Unknown]
  - Mutagenic effect [Unknown]
  - Off label use [Unknown]
  - Skin ulcer [Unknown]
